FAERS Safety Report 13689844 (Version 1)
Quarter: 2017Q2

REPORT INFORMATION
  Report Type: Spontaneous
  Country: SE (occurrence: SE)
  Receive Date: 20170626
  Receipt Date: 20170626
  Transmission Date: 20170830
  Serious: Yes (Other)
  Sender: FDA-Public Use
  Company Number: SE-TEVA-779218ISR

PATIENT
  Age: 62 Year
  Sex: Female

DRUGS (1)
  1. MIRTAZAPINE ACTAVIS [Suspect]
     Active Substance: MIRTAZAPINE
     Dates: end: 20161028

REACTIONS (5)
  - Amnesia [Unknown]
  - Allergy to metals [Unknown]
  - Visual impairment [Unknown]
  - Allergy to arthropod sting [Unknown]
  - Epilepsy [Unknown]

NARRATIVE: CASE EVENT DATE: 20160531
